FAERS Safety Report 23664890 (Version 1)
Quarter: 2024Q1

REPORT INFORMATION
  Report Type: Spontaneous
  Country: CA (occurrence: CA)
  Receive Date: 20240322
  Receipt Date: 20240322
  Transmission Date: 20240409
  Serious: Yes (Death)
  Sender: FDA-Public Use
  Company Number: CA-PFIZER INC-PV202300050025

PATIENT
  Age: 73 Year
  Sex: Male

DRUGS (3)
  1. BRAFTOVI [Suspect]
     Active Substance: ENCORAFENIB
     Dosage: UNK
     Dates: start: 20230321
  2. CETUXIMAB [Concomitant]
     Active Substance: CETUXIMAB
     Dosage: UNK
  3. PANITUMUMAB [Concomitant]
     Active Substance: PANITUMUMAB
     Dosage: UNK
     Dates: start: 20230321

REACTIONS (3)
  - Death [Fatal]
  - Off label use [Unknown]
  - Product use issue [Unknown]

NARRATIVE: CASE EVENT DATE: 20230321
